FAERS Safety Report 18921915 (Version 1)
Quarter: 2021Q1

REPORT INFORMATION
  Report Type: Spontaneous
  Country: US (occurrence: US)
  Receive Date: 20210219
  Receipt Date: 20210219
  Transmission Date: 20210420
  Serious: Yes (Death)
  Sender: FDA-Public Use
  Company Number: None

PATIENT
  Age: 85 Year
  Sex: Female

DRUGS (1)
  1. BOSULIF [Suspect]
     Active Substance: BOSUTINIB MONOHYDRATE
     Indication: CHRONIC LYMPHOCYTIC LEUKAEMIA
     Route: 046
     Dates: start: 20160416

REACTIONS (3)
  - Pulmonary oedema [None]
  - Condition aggravated [None]
  - Pulmonary mass [None]

NARRATIVE: CASE EVENT DATE: 20210208
